FAERS Safety Report 5229620-1 (Version None)
Quarter: 2007Q1

REPORT INFORMATION
  Report Type: 
  Country: None (occurrence: None)
  Receive Date: 20070201
  Receipt Date: 20070123
  Transmission Date: 20070707
  Serious: Yes (Hospitalization, Other)
  Sender: FDA-Public Use
  Company Number: 2006SP004474

PATIENT
  Age: 52 Year
  Sex: Male
  Weight: 72.5755 kg

DRUGS (7)
  1. LUNESTA [Suspect]
     Indication: INSOMNIA
     Dosage: 3 MG; HS; ORAL
     Route: 048
     Dates: start: 20051015, end: 20070122
  2. LEXAPRO [Suspect]
     Indication: DEPRESSION
     Dosage: 10 MG; 20 MG
     Dates: start: 20060601, end: 20061001
  3. LEXAPRO [Suspect]
     Indication: DEPRESSION
     Dosage: 10 MG; 20 MG
     Dates: start: 20061001
  4. ATIVAN [Suspect]
     Indication: DEPRESSION
     Dosage: 0.5 MG; BID
     Dates: start: 20060601
  5. ASACOL [Concomitant]
  6. NEXIUM [Concomitant]
  7. ATORVASTATIN [Concomitant]

REACTIONS (5)
  - CONDITION AGGRAVATED [None]
  - DEPRESSION [None]
  - METASTASES TO LYMPH NODES [None]
  - STRESS [None]
  - THYROID CANCER [None]
